FAERS Safety Report 5405637-9 (Version None)
Quarter: 2007Q3

REPORT INFORMATION
  Report Type: 
  Country: None (occurrence: None)
  Receive Date: 20070806
  Receipt Date: 20070730
  Transmission Date: 20080115
  Serious: Yes (Hospitalization, Other)
  Sender: FDA-Public Use
  Company Number: PHBS2007JP06428

PATIENT
  Age: 63 Year
  Sex: Male
  Weight: 54 kg

DRUGS (9)
  1. GLEEVEC [Suspect]
     Indication: GASTROINTESTINAL STROMAL TUMOUR
     Dosage: 400 MG/D
     Route: 048
     Dates: start: 20060401, end: 20060410
  2. GLEEVEC [Suspect]
     Dosage: UNK, UNK
     Route: 048
     Dates: start: 20060501
  3. LANSOPRAZOLE [Concomitant]
     Dosage: 30 MG/D
     Route: 048
     Dates: start: 20060326
  4. LANSOPRAZOLE [Concomitant]
     Dosage: 15 MG/D
     Route: 048
  5. FERROMIA [Concomitant]
     Dosage: 100 MG/D
     Route: 048
     Dates: start: 20060330, end: 20060529
  6. NAUZELIN [Concomitant]
     Dosage: 30 MG/D
     Route: 048
     Dates: start: 20060331
  7. PELTAZON [Concomitant]
     Dosage: 75 MG/D
     Route: 048
     Dates: start: 20060406, end: 20060803
  8. PREDNISOLONE [Concomitant]
     Dosage: 20 MG/D
     Route: 048
     Dates: start: 20060405
  9. CEFAMEZIN [Concomitant]
     Dates: start: 20060325, end: 20060326

REACTIONS (10)
  - CARDIAC FAILURE CONGESTIVE [None]
  - CARDIOMEGALY [None]
  - DYSPNOEA [None]
  - FLUID RETENTION [None]
  - FUSOBACTERIUM INFECTION [None]
  - INFLAMMATION [None]
  - LUNG ABSCESS [None]
  - PLEURAL EFFUSION [None]
  - PURULENT DISCHARGE [None]
  - PYREXIA [None]
